FAERS Safety Report 15378123 (Version 1)
Quarter: 2018Q3

REPORT INFORMATION
  Report Type: Spontaneous
  Country: US (occurrence: US)
  Receive Date: 20180913
  Receipt Date: 20180913
  Transmission Date: 20181010
  Serious: No
  Sender: FDA-Public Use
  Company Number: US-ALLERGAN-1731473US

PATIENT
  Age: 72 Year
  Sex: Female

DRUGS (3)
  1. VANIQA [Suspect]
     Active Substance: EFLORNITHINE HYDROCHLORIDE
     Indication: HAIR GROWTH ABNORMAL
     Dosage: UNK, BID
     Route: 061
     Dates: start: 201707, end: 201707
  2. VITAMIN B12 [Concomitant]
     Active Substance: CYANOCOBALAMIN
     Indication: SUPPLEMENTATION THERAPY
     Dosage: UNK UNK, UNKNOWN
     Route: 048
  3. VITAMIN D [Concomitant]
     Active Substance: CHOLECALCIFEROL
     Indication: SUPPLEMENTATION THERAPY
     Dosage: UNK UNK, UNKNOWN
     Route: 048

REACTIONS (7)
  - Rash [Unknown]
  - Drug hypersensitivity [Unknown]
  - Face oedema [Unknown]
  - Pruritus [Unknown]
  - Erythema [Unknown]
  - Pain of skin [Unknown]
  - Burning sensation [Unknown]

NARRATIVE: CASE EVENT DATE: 201707
